FAERS Safety Report 9009533 (Version 1)
Quarter: 2013Q1

REPORT INFORMATION
  Report Type: Spontaneous
  Country: IT (occurrence: IT)
  Receive Date: 20130110
  Receipt Date: 20130110
  Transmission Date: 20140127
  Serious: Yes (Hospitalization)
  Sender: FDA-Public Use
  Company Number: IT-GLAXOSMITHKLINE-B0857667A

PATIENT
  Age: 71 Year
  Sex: Female

DRUGS (7)
  1. LAMICTAL [Suspect]
     Indication: BIPOLAR DISORDER
     Dosage: 50MG PER DAY
     Route: 048
     Dates: start: 20080101, end: 20121122
  2. ALPRAZOLAM [Suspect]
     Indication: ANXIETY
     Dosage: 30DROP PER DAY
     Route: 065
     Dates: start: 20080101, end: 20121122
  3. FEVARIN [Suspect]
     Indication: DEPRESSION
     Dosage: 50MG PER DAY
     Route: 065
     Dates: start: 20110101, end: 20121122
  4. ANAFRANIL [Suspect]
     Indication: BIPOLAR DISORDER
     Dosage: 75MG PER DAY
     Route: 065
     Dates: start: 20121022, end: 20121122
  5. METFORMIN HYDROCHLORIDE [Concomitant]
     Indication: TYPE 2 DIABETES MELLITUS
     Dosage: 3000MG PER DAY
  6. CARDIOASPIRIN [Concomitant]
  7. PROVISACOR [Concomitant]

REACTIONS (3)
  - Tremor [Recovering/Resolving]
  - Muscle rigidity [Recovering/Resolving]
  - Drug interaction [Recovering/Resolving]
